FAERS Safety Report 16277336 (Version 1)
Quarter: 2019Q2

REPORT INFORMATION
  Report Type: Spontaneous
  Country: US (occurrence: US)
  Receive Date: 20190506
  Receipt Date: 20190506
  Transmission Date: 20190711
  Serious: No
  Sender: FDA-Public Use
  Company Number: None

PATIENT
  Age: 46 Year
  Sex: Male
  Weight: 114.75 kg

DRUGS (4)
  1. PROMETHAZINE [Concomitant]
     Active Substance: PROMETHAZINE\PROMETHAZINE HYDROCHLORIDE
  2. CLINDAMYCIN 300MG CAPSULES [Suspect]
     Active Substance: CLINDAMYCIN
     Indication: INFECTION PROPHYLAXIS
     Dosage: ?          QUANTITY:1 CAPSULE(S);?
     Route: 048
     Dates: start: 20190423, end: 20190504
  3. IBUPROFEN. [Concomitant]
     Active Substance: IBUPROFEN
  4. OXYCODONE [Concomitant]
     Active Substance: OXYCODONE

REACTIONS (5)
  - Diarrhoea [None]
  - Abdominal discomfort [None]
  - Rash pustular [None]
  - Rash pruritic [None]
  - Abdominal pain upper [None]

NARRATIVE: CASE EVENT DATE: 20190504
